FAERS Safety Report 5683273-7 (Version None)
Quarter: 2008Q1

REPORT INFORMATION
  Report Type: 
  Country: None (occurrence: None)
  Receive Date: 20080326
  Receipt Date: 20080314
  Transmission Date: 20080703
  Serious: Yes (Hospitalization, Other)
  Sender: FDA-Public Use
  Company Number: 2008S1004403

PATIENT
  Age: 12 Year
  Sex: Male

DRUGS (3)
  1. AMITRIPTYLINE HYDROCHLORIDE [Suspect]
     Indication: HEADACHE
     Dosage: 25 MG; DAILY; ORAL, 50 MG; DAILY; ORAL
     Route: 048
     Dates: start: 20080201, end: 20080310
  2. AMITRIPTYLINE HYDROCHLORIDE [Suspect]
     Indication: HEADACHE
     Dosage: 25 MG; DAILY; ORAL, 50 MG; DAILY; ORAL
     Route: 048
     Dates: start: 20080310, end: 20080313
  3. FIORICET [Suspect]
     Indication: HEADACHE
     Dosage: 100 MG; TWICE A DAY; ORAL
     Route: 048
     Dates: start: 20080311, end: 20080313

REACTIONS (12)
  - AGGRESSION [None]
  - AGITATION [None]
  - AMNESIA [None]
  - ANGER [None]
  - ENERGY INCREASED [None]
  - HALLUCINATION [None]
  - HOMICIDAL IDEATION [None]
  - HOSTILITY [None]
  - IMPULSIVE BEHAVIOUR [None]
  - IRRITABILITY [None]
  - NO THERAPEUTIC RESPONSE [None]
  - PHYSICAL ASSAULT [None]
